FAERS Safety Report 25715900 (Version 3)
Quarter: 2025Q3

REPORT INFORMATION
  Report Type: Spontaneous
  Country: US (occurrence: US)
  Receive Date: 20250822
  Receipt Date: 20250930
  Transmission Date: 20251021
  Serious: No
  Sender: LUPIN
  Company Number: US-LUPIN PHARMACEUTICALS INC.-2025-07517

PATIENT

DRUGS (1)
  1. DULOXETINE [Suspect]
     Active Substance: DULOXETINE
     Indication: Product used for unknown indication
     Route: 065

REACTIONS (9)
  - Adverse event [Unknown]
  - Heart rate increased [Unknown]
  - Palpitations [Unknown]
  - Feeling abnormal [Unknown]
  - Anxiety [Unknown]
  - Hypopnoea [Unknown]
  - Dyspnoea [Unknown]
  - Withdrawal syndrome [Unknown]
  - Product substitution issue [Unknown]
